FAERS Safety Report 9762407 (Version 2)
Quarter: 2014Q1

REPORT INFORMATION
  Report Type: Spontaneous
  Country: US (occurrence: US)
  Receive Date: 20131216
  Receipt Date: 20140331
  Transmission Date: 20141002
  Serious: No
  Sender: FDA-Public Use
  Company Number: US-BIOGENIDEC-2013BI102568

PATIENT
  Age: 46 Year
  Sex: Female

DRUGS (8)
  1. TECFIDERA [Suspect]
     Indication: MULTIPLE SCLEROSIS
     Route: 048
     Dates: start: 20130716
  2. TECFIDERA [Suspect]
     Indication: MULTIPLE SCLEROSIS
     Route: 048
     Dates: start: 20130723
  3. TECFIDERA [Suspect]
     Indication: MULTIPLE SCLEROSIS
     Route: 048
     Dates: start: 20130805
  4. TECFIDERA [Suspect]
     Indication: MULTIPLE SCLEROSIS
     Route: 048
     Dates: start: 20130903
  5. BIOTIN MAXIMUM STRENGTH [Concomitant]
  6. BYSTOLIC [Concomitant]
  7. LEVOTHYROXINE SODIUM [Concomitant]
  8. NIACIN ER [Concomitant]

REACTIONS (2)
  - Alopecia [Unknown]
  - Abdominal discomfort [Unknown]
